FAERS Safety Report 8452087-7 (Version None)
Quarter: 2012Q2

REPORT INFORMATION
  Report Type: 
  Country: None (occurrence: None)
  Receive Date: 20120620
  Receipt Date: 20120614
  Transmission Date: 20120825
  Serious: Yes (Other)
  Sender: FDA-Public Use
  Company Number: US-GLAXOSMITHKLINE-A0875850A

PATIENT
  Age: 47 Year
  Sex: Male
  Weight: 202.3 kg

DRUGS (9)
  1. GLYBURIDE [Concomitant]
     Dates: end: 20071001
  2. AVANDIA [Suspect]
     Indication: DIABETES MELLITUS
     Dosage: 8MG PER DAY
     Route: 048
     Dates: start: 20021024, end: 20080101
  3. CELEBREX [Concomitant]
  4. ATORVASTATIN CALCIUM [Concomitant]
  5. ALLOPURINOL [Concomitant]
  6. FLUTICASONE PROPIONATE [Concomitant]
  7. PREDNISONE TAB [Concomitant]
  8. METOPROLOL SUCCINATE [Concomitant]
  9. XOPENEX [Concomitant]

REACTIONS (3)
  - RENAL FAILURE [None]
  - CARDIAC DISORDER [None]
  - CARDIAC FAILURE CONGESTIVE [None]
